FAERS Safety Report 8803855 (Version 1)
Quarter: 2012Q4

REPORT INFORMATION
  Report Type: 
  Country: IN (occurrence: IN)
  Receive Date: 20120924
  Receipt Date: 20120924
  Transmission Date: 20130627
  Serious: Yes (Death)
  Sender: FDA-Public Use
  Company Number: PHHY2012IN082641

PATIENT
  Sex: Male

DRUGS (1)
  1. TASIGNA [Suspect]
     Indication: CHRONIC MYELOID LEUKAEMIA
     Dosage: 400 mg, BID
     Route: 048
     Dates: start: 20120321, end: 201208

REACTIONS (5)
  - Death [Fatal]
  - Renal disorder [Unknown]
  - Nausea [Unknown]
  - Vomiting [Unknown]
  - Dyspepsia [Unknown]
